FAERS Safety Report 4539707-4 (Version None)
Quarter: 2004Q4

REPORT INFORMATION
  Report Type: 
  Country: None (occurrence: None)
  Receive Date: 20041223
  Receipt Date: 20041208
  Transmission Date: 20050328
  Serious: No
  Sender: FDA-Public Use
  Company Number: 9468

PATIENT
  Age: 72 Year
  Sex: Female

DRUGS (2)
  1. FLUOROURACIL [Suspect]
     Indication: COLON CANCER
     Dosage: 425 MG/MG OTH, IV
     Route: 042
  2. LEUCOVORIN [Suspect]
     Indication: COLON CANCER
     Dosage: 20 MG/M2 OTH, IV
     Route: 042

REACTIONS (4)
  - DIARRHOEA [None]
  - DRUG TOXICITY [None]
  - STOMATITIS [None]
  - THROMBOPHLEBITIS [None]
